FAERS Safety Report 16080050 (Version 1)
Quarter: 2019Q1

REPORT INFORMATION
  Report Type: Spontaneous
  Country: CN (occurrence: CN)
  Receive Date: 20190315
  Receipt Date: 20190315
  Transmission Date: 20190418
  Serious: Yes (Other)
  Sender: FDA-Public Use
  Company Number: CN-VALIDUS PHARMACEUTICALS LLC-CN-2019VAL000153

PATIENT

DRUGS (2)
  1. CINACALCET. [Concomitant]
     Active Substance: CINACALCET
     Indication: CHRONIC KIDNEY DISEASE-MINERAL AND BONE DISORDER
     Dosage: UNK
  2. CALCITRIOL. [Suspect]
     Active Substance: CALCITRIOL
     Indication: CHRONIC KIDNEY DISEASE-MINERAL AND BONE DISORDER
     Dosage: UNK
     Route: 065

REACTIONS (5)
  - Liver injury [Unknown]
  - Hypotension [Unknown]
  - Weight decreased [Unknown]
  - Body height decreased [Unknown]
  - Dizziness [Unknown]
